FAERS Safety Report 6610234-3 (Version None)
Quarter: 2010Q1

REPORT INFORMATION
  Report Type: 
  Country: None (occurrence: None)
  Receive Date: 20100302
  Receipt Date: 20100219
  Transmission Date: 20100710
  Serious: Yes (Hospitalization)
  Sender: FDA-Public Use
  Company Number: US-JNJFOC-20100210308

PATIENT
  Age: 2 Year
  Sex: Female

DRUGS (9)
  1. TYLENOL W/ CODEINE NO. 3 [Suspect]
     Route: 065
  2. TYLENOL W/ CODEINE NO. 3 [Suspect]
     Indication: DRUG USE FOR UNKNOWN INDICATION
     Route: 065
  3. CHILDREN'S TYLENOL BUBBLE GUM SOFT-CHEWS [Suspect]
     Indication: INFLUENZA
     Route: 048
  4. CHILDREN'S TYLENOL BUBBLE GUM SOFT-CHEWS [Suspect]
     Route: 048
  5. CHILDREN'S TYLENOL BUBBLE GUM SOFT-CHEWS [Suspect]
     Indication: NASOPHARYNGITIS
     Route: 048
  6. CHILDREN'S TYLENOL BUBBLE GUM SOFT-CHEWS [Suspect]
     Route: 048
  7. DIMETAPP [Suspect]
     Indication: INFLUENZA
     Route: 048
  8. DIMETAPP [Suspect]
     Indication: NASOPHARYNGITIS
     Route: 048
  9. PSEUDOEPHEDRINE [Suspect]
     Indication: DRUG USE FOR UNKNOWN INDICATION
     Route: 065

REACTIONS (6)
  - ACCIDENTAL OVERDOSE [None]
  - ELECTROLYTE IMBALANCE [None]
  - ENCEPHALOPATHY [None]
  - HEPATIC FUNCTION ABNORMAL [None]
  - HYPERTENSION [None]
  - RENAL FAILURE [None]
